FAERS Safety Report 4877829-9 (Version None)
Quarter: 2006Q1

REPORT INFORMATION
  Report Type: 
  Country: None (occurrence: None)
  Receive Date: 20060109
  Receipt Date: 20060103
  Transmission Date: 20060701
  Serious: No
  Sender: FDA-Public Use
  Company Number: 06H-163-0304312-00

PATIENT

DRUGS (1)
  1. LIDOCAINE HYDROCHLORIDE IN DEXTROSE INJECTION (LIDOCAINE/DEXTROSE) (LI [Suspect]

REACTIONS (1)
  - THROAT TIGHTNESS [None]
